FAERS Safety Report 5349327-X (Version None)
Quarter: 2007Q2

REPORT INFORMATION
  Report Type: 
  Country: None (occurrence: None)
  Receive Date: 20070607
  Receipt Date: 20070601
  Transmission Date: 20071010
  Serious: Yes (Hospitalization)
  Sender: FDA-Public Use
  Company Number: B0474219A

PATIENT
  Age: 39 Year
  Sex: Female

DRUGS (5)
  1. ZOFRAN [Suspect]
     Route: 042
     Dates: start: 20070224
  2. ALVEDON [Concomitant]
  3. VOLTAREN [Concomitant]
  4. STESOLID [Concomitant]
  5. DEXOFEN [Concomitant]

REACTIONS (4)
  - ABDOMINAL PAIN [None]
  - DYSKINESIA [None]
  - NAUSEA [None]
  - VOMITING [None]
